FAERS Safety Report 6868756-6 (Version None)
Quarter: 2010Q3

REPORT INFORMATION
  Report Type: 
  Country: None (occurrence: None)
  Receive Date: 20100722
  Receipt Date: 20080611
  Transmission Date: 20110219
  Serious: Yes (Other)
  Sender: FDA-Public Use
  Company Number: US-PFIZER INC-2008049711

PATIENT
  Sex: Female
  Weight: 75.8 kg

DRUGS (13)
  1. CHANTIX [Suspect]
     Indication: SMOKING CESSATION THERAPY
     Route: 048
     Dates: start: 20080501
  2. ALTACE [Concomitant]
  3. ADVAIR DISKUS 100/50 [Concomitant]
     Route: 055
  4. CALCIUM [Concomitant]
  5. COREG [Concomitant]
  6. FOLIC ACID [Concomitant]
  7. GLYBURIDE [Concomitant]
  8. HUMIRA [Concomitant]
  9. LASIX [Concomitant]
  10. METFORMIN [Concomitant]
  11. METHOTREXATE [Concomitant]
  12. METFORMIN [Concomitant]
  13. PLAVIX [Concomitant]

REACTIONS (1)
  - OEDEMA PERIPHERAL [None]
